FAERS Safety Report 6019901-6 (Version None)
Quarter: 2008Q4

REPORT INFORMATION
  Report Type: 
  Country: None (occurrence: None)
  Receive Date: 20081222
  Receipt Date: 20081217
  Transmission Date: 20090506
  Serious: Yes (Death, Life-Threatening)
  Sender: FDA-Public Use
  Company Number: CLOF-1000116

PATIENT
  Age: 14 Year
  Sex: Female
  Weight: 43.9 kg

DRUGS (59)
  1. CLOLAR [Suspect]
     Indication: ACUTE LYMPHOCYTIC LEUKAEMIA
     Dosage: 27 MG, QDX5, INTRAVENOUS
     Route: 042
     Dates: start: 20080206, end: 20080210
  2. BUSULFAN (BUSULFAN) UNKNOWN [Suspect]
     Dosage: 3.2 MG/KG, QD, INTRAVENOUS
     Route: 042
     Dates: start: 20080207, end: 20080210
  3. BUSULFAN (BUSULFAN) UNKNOWN [Suspect]
     Dosage: 3.2 MG/KG, QD, INTRAVENOUS
     Route: 042
     Dates: start: 20080210, end: 20080211
  4. AMPICILINA SULBACTAM (AMPICILLIN SODIUM, SULBACTAM) [Concomitant]
  5. AZITHROMYCIN [Concomitant]
  6. MICAFUNGIN (MICAFUNGIN) [Concomitant]
  7. PHENYTOIN [Concomitant]
  8. CYCLOSPORIN (CICLOSPORIN) EYE DROPS [Concomitant]
  9. DIPHENHYDRAMINE (AMMONIUM CHLORIDE, DIPHENHYDRAMINE, SODIUM CITRATE) [Concomitant]
  10. FOSPHENYTOIN (FOSPHENYTOIN) [Concomitant]
  11. MORPHINE [Concomitant]
  12. ONDANSETRON HCL [Concomitant]
  13. URSODIOL [Concomitant]
  14. ACETAMINOPHEN [Concomitant]
  15. BENZONATATE [Concomitant]
  16. LORAZEPAM [Concomitant]
  17. PROMETHAZINE [Concomitant]
  18. DEXAMETHASONE (17A-ESTRADIOL) [Concomitant]
  19. POTASSIUM IN SODIUM CHLORIDE (POTASSIUM CHLORIDE, SODIUM CHLORIDE) SOL [Concomitant]
  20. TACROLIMUS [Concomitant]
  21. VORICONAZOLE (VORICONAZOLE) [Concomitant]
  22. METRONIDAZOLE [Concomitant]
  23. POTASSIUM CHLORIDE [Concomitant]
  24. VECURONIUM BROMIDE [Concomitant]
  25. FUROSEMIDE [Concomitant]
  26. VANCOMYCIN HYDROCHLORIDE [Concomitant]
  27. PANTOPRAZOLE SODIUM [Concomitant]
  28. MIDAZOLAM HYDROCHLORIDE [Concomitant]
  29. PIPERACILLIN SODIUM (PIPERACILLIN SODIUM, TAZOBACTAM) [Concomitant]
  30. ALBUMIN (HUMAN) [Concomitant]
  31. LEVOFLOXACIN [Concomitant]
  32. METHYLPREDNISOLONE [Concomitant]
  33. DIATRIZOATE SODIUM W (MEGLUMINE AMIDOTRIZOATE, SODIUM AMIDOTRIZOATE) [Concomitant]
  34. ROCURONIUM BROMIDE (ROCURONIUM BROMIDE) [Concomitant]
  35. FENTANYL CITRATE (FENTANLY CITRATE) [Concomitant]
  36. GUAIDENESIN DM (DEXTROMETHORPHAN HYDROCBROMIDE, GUAIFENESIN) [Concomitant]
  37. ERGOCALCIFEROL [Concomitant]
  38. KETAMINE HCL [Concomitant]
  39. CEFEPIME HYDROCHLORIDE [Concomitant]
  40. DEOXYRIBONUCLEASE HUMAN (DORNASE ALFA) [Concomitant]
  41. LEVABUTEROL HYDROCHLORIDE (LEVOSALBUTAMOL HYDROCHLORIDE) [Concomitant]
  42. RIBAVIRIN [Concomitant]
  43. INSULIN ASPART (INSULIN ASPART) [Concomitant]
  44. ALBUTEROL SULFATE [Concomitant]
  45. HYDROCORTISONE SODIUM SUCCINATE [Concomitant]
  46. DOCUSATE SODIUM (DOCUSATE SODIUM) [Concomitant]
  47. ETANERCEPT (ETANERCEPT) [Concomitant]
  48. VANCOMYCIN [Concomitant]
  49. FILGRASTIM (FILGRASTIM) [Concomitant]
  50. MAGNESIUM SULFATE [Concomitant]
  51. ACYCLOVIR [Concomitant]
  52. FOSPHENYTOIN (FOSPHENYTOIN) [Concomitant]
  53. MYCOPHENOLATE MOFETIL [Concomitant]
  54. AMPICILLIN SODIUM (AMPICILLIN SODIUM) [Concomitant]
  55. AMBISOME [Concomitant]
  56. HYDRALAZINE HCL (HYDRALAZINE HYDROCHLORIDE) [Concomitant]
  57. CALCIUM GLUCONATE [Concomitant]
  58. PAPAVERINE HYDROCHLORIDE (PAPAVERINE HYDROCHLORIDE) [Concomitant]
  59. CARIMUNE (IMMUNOGLOBULINS) [Concomitant]

REACTIONS (14)
  - ACUTE GRAFT VERSUS HOST DISEASE [None]
  - ALANINE AMINOTRANSFERASE INCREASED [None]
  - ASPARTATE AMINOTRANSFERASE INCREASED [None]
  - BRONCHOPULMONARY ASPERGILLOSIS [None]
  - CONVULSION [None]
  - GASTROINTESTINAL INFECTION [None]
  - HYPERSENSITIVITY [None]
  - HYPOXIA [None]
  - NO THERAPEUTIC RESPONSE [None]
  - REFUSAL OF TREATMENT BY RELATIVE [None]
  - RESPIRATORY DISTRESS [None]
  - RESPIRATORY TRACT INFECTION [None]
  - STEM CELL TRANSPLANT [None]
  - URINARY TRACT INFECTION [None]
